FAERS Safety Report 6414825-4 (Version None)
Quarter: 2009Q4

REPORT INFORMATION
  Report Type: 
  Country: None (occurrence: None)
  Receive Date: 20091026
  Receipt Date: 20091026
  Transmission Date: 20100525
  Serious: Yes (Other)
  Sender: FDA-Public Use
  Company Number: None

PATIENT
  Age: 69 Year
  Sex: Female
  Weight: 72.5755 kg

DRUGS (1)
  1. RECLAST [Suspect]
     Indication: OSTEOPENIA
     Dates: start: 20090827, end: 20090827

REACTIONS (14)
  - ARTHRALGIA [None]
  - BALANCE DISORDER [None]
  - BONE PAIN [None]
  - DIARRHOEA [None]
  - DYSPNOEA [None]
  - EYELID OEDEMA [None]
  - FATIGUE [None]
  - GENERALISED OEDEMA [None]
  - HYPERSENSITIVITY [None]
  - IRRITABILITY [None]
  - MYALGIA [None]
  - SWELLING FACE [None]
  - TINNITUS [None]
  - WEIGHT INCREASED [None]
